FAERS Safety Report 17877814 (Version 2)
Quarter: 2020Q3

REPORT INFORMATION
  Report Type: Report from Study
  Country: None (occurrence: US)
  Receive Date: 20200610
  Receipt Date: 20200724
  Transmission Date: 20201103
  Serious: Yes (Other)
  Sender: FDA-Public Use
  Company Number: US-ABBVIE-20K-163-3428275-00

PATIENT
  Age: 86 Year
  Sex: Male

DRUGS (7)
  1. VENCLEXTA [Suspect]
     Active Substance: VENETOCLAX
     Dosage: DAYS 15 THROUGH 21: 100 MG BY MOUTH ONCE A DAY
     Route: 048
  2. VENCLEXTA [Suspect]
     Active Substance: VENETOCLAX
     Dosage: DAY 8 THROUGH 14: 50 MG BY MOUTH ONCE A DAY
     Route: 048
  3. VENCLEXTA [Suspect]
     Active Substance: VENETOCLAX
     Route: 048
  4. VENCLEXTA [Suspect]
     Active Substance: VENETOCLAX
     Route: 048
  5. VENCLEXTA [Suspect]
     Active Substance: VENETOCLAX
     Route: 048
  6. VENCLEXTA [Suspect]
     Active Substance: VENETOCLAX
     Indication: CHRONIC LYMPHOCYTIC LEUKAEMIA
     Dosage: TAKE 4 TABS BY MOUTH EVERY DAY; DAY 1 THROUGH 7: 20 MG BY MOUTH ONCE A DAY
     Route: 048
     Dates: start: 20180406
  7. VENCLEXTA [Suspect]
     Active Substance: VENETOCLAX
     Dosage: DAYS 22 THROUGH 28: 200 MG BY MOUTH ONCE A DAY
     Route: 048

REACTIONS (5)
  - Rib fracture [Recovered/Resolved]
  - Mobility decreased [Recovered/Resolved]
  - Haemorrhage [Recovered/Resolved]
  - Skin laxity [Recovered/Resolved]
  - Fall [Recovered/Resolved]

NARRATIVE: CASE EVENT DATE: 20200528
